FAERS Safety Report 10086794 (Version 1)
Quarter: 2014Q2

REPORT INFORMATION
  Report Type: Report from Study
  Country: US (occurrence: US)
  Receive Date: 20140418
  Receipt Date: 20140418
  Transmission Date: 20141212
  Serious: Yes (Hospitalization, Other)
  Sender: FDA-Public Use
  Company Number: US-JNJFOC-20140412805

PATIENT
  Age: 87 Year
  Sex: Male
  Weight: 74 kg

DRUGS (15)
  1. IBRUTINIB [Suspect]
     Indication: MANTLE CELL LYMPHOMA
     Route: 048
     Dates: start: 20131205
  2. ALLOPURINOL [Concomitant]
  3. ATORVASTATIN [Concomitant]
  4. FUROSEMIDE [Concomitant]
  5. AMIODARONE [Concomitant]
  6. LEVOTHYROXINE [Concomitant]
  7. LOVASTATIN [Concomitant]
  8. METOPROLOL [Concomitant]
  9. OMEPRAZOLE [Concomitant]
  10. POTASSIUM [Concomitant]
  11. PLAVIX [Concomitant]
  12. TEMAZEPAM [Concomitant]
  13. COLACE [Concomitant]
  14. NITROGLYCERIN [Concomitant]
  15. VICODIN [Concomitant]

REACTIONS (3)
  - Acute respiratory failure [Recovering/Resolving]
  - Pneumonia [Recovering/Resolving]
  - Renal failure acute [Unknown]
